FAERS Safety Report 16668592 (Version 1)
Quarter: 2019Q3

REPORT INFORMATION
  Report Type: Spontaneous
  Country: US (occurrence: US)
  Receive Date: 20190804
  Receipt Date: 20190804
  Transmission Date: 20191004
  Serious: Yes (Other)
  Sender: FDA-Public Use
  Company Number: None

PATIENT
  Age: 45 Year
  Sex: Male
  Weight: 81 kg

DRUGS (1)
  1. LEVOFLOXACIN 750 MG TABLET [Suspect]
     Active Substance: LEVOFLOXACIN
     Indication: SINUSITIS
     Dosage: ?          QUANTITY:1 TABLET(S);?
     Route: 048
     Dates: start: 20190722, end: 20190724

REACTIONS (3)
  - Tendon pain [None]
  - Joint injury [None]
  - Tendon disorder [None]

NARRATIVE: CASE EVENT DATE: 20190724
